FAERS Safety Report 4467948-3 (Version None)
Quarter: 2004Q4

REPORT INFORMATION
  Report Type: 
  Country: None (occurrence: None)
  Receive Date: 20041004
  Receipt Date: 20041004
  Transmission Date: 20050328
  Serious: Yes (Other)
  Sender: FDA-Public Use
  Company Number: None

PATIENT
  Age: 52 Year
  Sex: Male
  Weight: 77.1115 kg

DRUGS (3)
  1. NASAL-EASE  1 FL. OZ ZINC GLUCONATE  HITECH PHARMACAL [Suspect]
     Indication: NASAL DRYNESS
     Dosage: SPRAY  3-5 TIMES/8  NASAL
     Route: 045
  2. NASAL-EASE  1 FL. OZ ZINC GLUCONATE  HITECH PHARMACAL [Suspect]
     Indication: NASOPHARYNGITIS
     Dosage: SPRAY  3-5 TIMES/8  NASAL
     Route: 045
  3. NASAL-EASE  1 FL. OZ ZINC GLUCONATE  HITECH PHARMACAL [Suspect]
     Indication: PROPHYLAXIS
     Dosage: SPRAY  3-5 TIMES/8  NASAL
     Route: 045

REACTIONS (1)
  - PAROSMIA [None]
